FAERS Safety Report 6807305-5 (Version None)
Quarter: 2010Q2

REPORT INFORMATION
  Report Type: 
  Country: None (occurrence: None)
  Receive Date: 20100629
  Receipt Date: 20080902
  Transmission Date: 20101027
  Serious: No
  Sender: FDA-Public Use
  Company Number: US-PFIZER INC-2008073977

PATIENT
  Sex: Female
  Weight: 136.36 kg

DRUGS (3)
  1. SPIRONOLACTONE [Suspect]
     Indication: HYPERALDOSTERONISM
     Dosage: EVERY DAY
     Dates: start: 20080801, end: 20080901
  2. ATENOLOL [Concomitant]
  3. XANAX [Concomitant]

REACTIONS (5)
  - DIARRHOEA [None]
  - DIZZINESS [None]
  - HEADACHE [None]
  - NAUSEA [None]
  - PALPITATIONS [None]
